FAERS Safety Report 8228384-7 (Version None)
Quarter: 2012Q1

REPORT INFORMATION
  Report Type: 
  Country: None (occurrence: None)
  Receive Date: 20120322
  Receipt Date: 20110812
  Transmission Date: 20120608
  Serious: No
  Sender: FDA-Public Use
  Company Number: US-BRISTOL-MYERS SQUIBB COMPANY-15969959

PATIENT
  Age: 84 Year
  Sex: Male

DRUGS (2)
  1. ERBITUX [Suspect]
     Indication: COLORECTAL CANCER
     Dosage: 1DF:250 UNIT NOS
     Dates: start: 20090501, end: 20110701
  2. CAMPTOSAR [Suspect]
     Indication: COLORECTAL CANCER
     Dates: start: 20090501, end: 20110701

REACTIONS (1)
  - FAILURE TO THRIVE [None]
